FAERS Safety Report 14168906 (Version 1)
Quarter: 2017Q4

REPORT INFORMATION
  Report Type: Spontaneous
  Country: US (occurrence: None)
  Receive Date: 20171107
  Receipt Date: 20171107
  Transmission Date: 20180321
  Serious: No
  Sender: FDA-Public Use
  Company Number: None

PATIENT
  Age: 82 Year
  Sex: Female

DRUGS (11)
  1. NITROFURANT [Concomitant]
  2. ANORO ELLIPTA [Concomitant]
     Active Substance: UMECLIDINIUM BROMIDE\VILANTEROL TRIFENATATE
  3. CITRACAL [Concomitant]
     Active Substance: CALCIUM CITRATE
  4. PRAVASTATIN. [Concomitant]
     Active Substance: PRAVASTATIN
  5. TOBRAMYCIN + DEXAMETHASONE OPHTHALMIC SUSPENSION [Suspect]
     Active Substance: DEXAMETHASONE\TOBRAMYCIN
     Indication: EYE INFECTION
     Dates: start: 20170911, end: 20170913
  6. LOSARTAN. [Concomitant]
     Active Substance: LOSARTAN
  7. LORATADINE. [Concomitant]
     Active Substance: LORATADINE
  8. OMEPRAZOLE. [Concomitant]
     Active Substance: OMEPRAZOLE
  9. BEANO STOOL SOFTENER [Concomitant]
  10. CENTRUM SILVER [Concomitant]
     Active Substance: MINERALS\VITAMINS
  11. ASPIRIN. [Concomitant]
     Active Substance: ASPIRIN

REACTIONS (1)
  - Superficial injury of eye [None]

NARRATIVE: CASE EVENT DATE: 20170911
